FAERS Safety Report 21221251 (Version 2)
Quarter: 2022Q3

REPORT INFORMATION
  Report Type: Report from Study
  Country: BR (occurrence: BR)
  Receive Date: 20220817
  Receipt Date: 20220920
  Transmission Date: 20221027
  Serious: Yes (Other)
  Sender: FDA-Public Use
  Company Number: BR-NOVARTISPH-NVSC2022BR185618

PATIENT
  Sex: Male
  Weight: 41 kg

DRUGS (2)
  1. OMNITROPE [Suspect]
     Active Substance: SOMATROPIN
     Indication: Precocious puberty
     Dosage: 1.6 MG, QD (AT BED TIME)
     Route: 058
     Dates: start: 202110
  2. OMNITROPE [Suspect]
     Active Substance: SOMATROPIN
     Indication: Dwarfism

REACTIONS (3)
  - Skin fissures [Recovered/Resolved]
  - Subcutaneous drug absorption impaired [Recovered/Resolved]
  - Device leakage [Recovered/Resolved]
